FAERS Safety Report 7032861-4 (Version None)
Quarter: 2010Q4

REPORT INFORMATION
  Report Type: 
  Country: None (occurrence: None)
  Receive Date: 20101007
  Receipt Date: 20100930
  Transmission Date: 20110411
  Serious: Yes (Death)
  Sender: FDA-Public Use
  Company Number: US-GILEAD-2010-0032257

PATIENT
  Age: 57 Year
  Sex: Male
  Weight: 72.64 kg

DRUGS (21)
  1. LETAIRIS [Suspect]
     Indication: PULMONARY ARTERIAL HYPERTENSION
     Route: 048
     Dates: start: 20100331
  2. ROXICODONE [Concomitant]
  3. FENTANYL [Concomitant]
  4. KLONOPIN [Concomitant]
  5. DICYCLOMINE [Concomitant]
  6. COREG [Concomitant]
  7. LASIX [Concomitant]
  8. CAPTOPRIL [Concomitant]
  9. COMTAN [Concomitant]
  10. COLACE [Concomitant]
  11. CARBIDOPA [Concomitant]
  12. GABAPENTIN [Concomitant]
  13. LACTULOSE [Concomitant]
  14. NEXIUM [Concomitant]
  15. POTASSIUM CHLORIDE [Concomitant]
  16. CELEXA [Concomitant]
  17. VANCOMYCIN [Concomitant]
  18. ZINC [Concomitant]
  19. CALCIUM [Concomitant]
  20. VITAMIN E [Concomitant]
  21. MAGNESIUM [Concomitant]

REACTIONS (1)
  - DEATH [None]
